FAERS Safety Report 5103387-X (Version None)
Quarter: 2006Q3

REPORT INFORMATION
  Report Type: 
  Country: None (occurrence: None)
  Receive Date: 20060908
  Receipt Date: 20060823
  Transmission Date: 20061208
  Serious: Yes (Other)
  Sender: FDA-Public Use
  Company Number: SP00955

PATIENT
  Age: 44 Year
  Sex: Male
  Weight: 95.2554 kg

DRUGS (1)
  1. OSMOPREP [Suspect]
     Indication: GASTROINTESTINAL DISORDER
     Dosage: 32 TABLETS (20 TABLETS IN THE EVENING, 12 THE FOLLOWING MORNING), ORAL
     Route: 048
     Dates: start: 20060820, end: 20060821

REACTIONS (3)
  - ASPIRATION [None]
  - PNEUMONIA ASPIRATION [None]
  - PYREXIA [None]
